FAERS Safety Report 19901136 (Version 1)
Quarter: 2021Q3

REPORT INFORMATION
  Report Type: Report from Study
  Country: CH (occurrence: CH)
  Receive Date: 20210929
  Receipt Date: 20210929
  Transmission Date: 20211014
  Serious: Yes (Life-Threatening, Hospitalization, Other)
  Sender: FDA-Public Use
  Company Number: CH-SHIRE-CH202010287

PATIENT
  Age: 75 Year
  Sex: Male
  Weight: 84 kg

DRUGS (91)
  1. ADVATE [Suspect]
     Active Substance: ANTIHEMOPHILIC FACTOR, HUMAN RECOMBINANT
     Dosage: 2000 (UNKNOWN UNIT), 1X/DAY:QD
     Route: 042
     Dates: start: 20200320, end: 20200320
  2. ADVATE [Suspect]
     Active Substance: ANTIHEMOPHILIC FACTOR, HUMAN RECOMBINANT
     Dosage: (2000 UNKNOWN UNITS), 1X/DAY:QD
     Route: 042
     Dates: start: 20200402, end: 20200402
  3. ADVATE [Suspect]
     Active Substance: ANTIHEMOPHILIC FACTOR, HUMAN RECOMBINANT
     Dosage: (2000 UNKNOWN UNITS), 1X/DAY:QD
     Route: 042
     Dates: start: 20200405, end: 20200407
  4. PRED FORTE [Concomitant]
     Active Substance: PREDNISOLONE ACETATE
     Dosage: 1 PERCENT DROPS, QD
     Dates: start: 20200320, end: 20200327
  5. VASCORD HCT [Concomitant]
     Active Substance: AMLODIPINE BESYLATE\HYDROCHLOROTHIAZIDE\OLMESARTAN MEDOXOMIL
     Indication: HYPERTENSION
     Dosage: 40/10/25MG, QD
     Dates: start: 20190204, end: 20191104
  6. ZOLPIDEM [Concomitant]
     Active Substance: ZOLPIDEM TARTRATE
     Indication: HEADACHE
     Dosage: 10 MILLIGRAM, QD
  7. TRAMAL [Concomitant]
     Active Substance: TRAMADOL
     Indication: PAIN
     Dosage: 100 MILLIGRAM, BID
     Dates: start: 20200928, end: 20210101
  8. ADVATE [Suspect]
     Active Substance: ANTIHEMOPHILIC FACTOR, HUMAN RECOMBINANT
     Dosage: 2000 (UNKNOWN UNIT), 1X/DAY:QD
     Route: 042
     Dates: start: 20200319, end: 20200319
  9. ADVATE [Suspect]
     Active Substance: ANTIHEMOPHILIC FACTOR, HUMAN RECOMBINANT
     Dosage: 2000 (UNKNOWN UNIT)
     Route: 042
     Dates: start: 20200401
  10. ADVATE [Suspect]
     Active Substance: ANTIHEMOPHILIC FACTOR, HUMAN RECOMBINANT
     Dosage: (2000 UNKNOWN UNITS), 1X/DAY:QD
     Route: 042
     Dates: start: 20200401
  11. ADVATE [Suspect]
     Active Substance: ANTIHEMOPHILIC FACTOR, HUMAN RECOMBINANT
     Dosage: (2000 UNKNOWN UNITS), 1X/DAY:QD
     Route: 042
     Dates: start: 20200405, end: 20200407
  12. CARVEDILOL. [Concomitant]
     Active Substance: CARVEDILOL
     Indication: HYPERTENSION
     Dosage: 50 MILLIGRAM, QD
     Dates: end: 20210302
  13. MIRTAZAPINE. [Concomitant]
     Active Substance: MIRTAZAPINE
     Indication: HEADACHE
     Dosage: 30 MILLIGRAM, QD
     Dates: end: 20191104
  14. PRED FORTE [Concomitant]
     Active Substance: PREDNISOLONE ACETATE
     Indication: CATARACT OPERATION COMPLICATION
     Dosage: 1 PERCENT DROPS, QID
     Dates: start: 20200218, end: 20200224
  15. PRED FORTE [Concomitant]
     Active Substance: PREDNISOLONE ACETATE
     Dosage: 1 PERCENT DROPS, QID
     Dates: start: 20200304, end: 20200311
  16. LACRI VISION [Concomitant]
     Dosage: UNK
     Dates: start: 20200211
  17. AMLODIPINE [Concomitant]
     Active Substance: AMLODIPINE BESYLATE
     Indication: HYPERTENSION
     Dosage: 5 MILLIGRAM, QD
     Dates: start: 20120314, end: 20150323
  18. AMLODIPINE [Concomitant]
     Active Substance: AMLODIPINE BESYLATE
     Dosage: 10 MILLIGRAM, QD
     Dates: start: 20210511, end: 20210514
  19. CANDESARTAN. [Concomitant]
     Active Substance: CANDESARTAN
     Indication: HYPERTENSION
     Dosage: 32 MILLIGRAM, QD
     Dates: start: 20200317, end: 20200322
  20. ADVATE [Suspect]
     Active Substance: ANTIHEMOPHILIC FACTOR, HUMAN RECOMBINANT
     Dosage: 2000 (UNKNOWN UNIT), 1X/DAY:QD
     Route: 042
     Dates: start: 20200320, end: 20200320
  21. ADVATE [Suspect]
     Active Substance: ANTIHEMOPHILIC FACTOR, HUMAN RECOMBINANT
     Dosage: 2000 (UNKNOWN UNIT), 1X/DAY:QD
     Route: 042
     Dates: start: 20200320, end: 20200320
  22. ADVATE [Suspect]
     Active Substance: ANTIHEMOPHILIC FACTOR, HUMAN RECOMBINANT
     Dosage: 2000 (UNKNOWN UNIT), 1X/DAY:QD
     Route: 042
     Dates: start: 20200321, end: 20200321
  23. ADVATE [Suspect]
     Active Substance: ANTIHEMOPHILIC FACTOR, HUMAN RECOMBINANT
     Dosage: 2000 (UNKNOWN UNIT), 1X/DAY:QD
     Route: 042
     Dates: start: 20200322, end: 20200322
  24. ADVATE [Suspect]
     Active Substance: ANTIHEMOPHILIC FACTOR, HUMAN RECOMBINANT
     Dosage: 2000 (UNKNOWN UNIT), 1X/DAY:QD
     Route: 042
     Dates: start: 20200322, end: 20200322
  25. ADVATE [Suspect]
     Active Substance: ANTIHEMOPHILIC FACTOR, HUMAN RECOMBINANT
     Dosage: (2000?3000 UNKNOWN UNITS), 2X/DAY:BID
     Route: 042
     Dates: start: 20200403, end: 20200403
  26. NEXIUM [Concomitant]
     Active Substance: ESOMEPRAZOLE MAGNESIUM
     Indication: PROPHYLAXIS AGAINST GASTROINTESTINAL ULCER
     Dosage: 40 MILLIGRAM, BID
     Dates: end: 202003
  27. TOLGIN [Concomitant]
     Indication: PAIN
  28. PRED FORTE [Concomitant]
     Active Substance: PREDNISOLONE ACETATE
     Dosage: 1 PERCENT DROPS, BID
     Dates: start: 20200303, end: 20200309
  29. PRED FORTE [Concomitant]
     Active Substance: PREDNISOLONE ACETATE
     Dosage: 1 PERCENT DROPS, BID
     Dates: start: 20200312, end: 20200319
  30. TARGIN [Concomitant]
     Active Substance: NALOXONE HYDROCHLORIDE\OXYCODONE HYDROCHLORIDE
     Indication: PAIN
     Dosage: 10/5 MILLIGRAM, AS NEEDED
     Dates: start: 20190506, end: 201909
  31. YELLOX [Concomitant]
     Active Substance: BROMFENAC SODIUM
     Indication: CATARACT OPERATION COMPLICATION
     Dosage: 0.9MG/ML DROPS, BID
     Dates: start: 20200211, end: 20200224
  32. AMLODIPINE [Concomitant]
     Active Substance: AMLODIPINE BESYLATE
     Dosage: 10 MILLIGRAM
     Dates: start: 20210515
  33. ADVATE [Suspect]
     Active Substance: ANTIHEMOPHILIC FACTOR, HUMAN RECOMBINANT
     Indication: SURGERY
     Dosage: 2000 (UNKNOWN UNIT), 1X/DAY:QD
     Route: 042
     Dates: start: 20200316, end: 20200316
  34. ADVATE [Suspect]
     Active Substance: ANTIHEMOPHILIC FACTOR, HUMAN RECOMBINANT
     Dosage: 2000 (UNKNOWN UNIT), 3X/DAY:TID
     Route: 042
     Dates: start: 20200317, end: 20200317
  35. ADVATE [Suspect]
     Active Substance: ANTIHEMOPHILIC FACTOR, HUMAN RECOMBINANT
     Dosage: 2000 (UNKNOWN UNIT), 1X/DAY:QD
     Route: 042
     Dates: start: 20200318, end: 20200318
  36. ADVATE [Suspect]
     Active Substance: ANTIHEMOPHILIC FACTOR, HUMAN RECOMBINANT
     Dosage: (2000 UNKNOWN UNITS), 1X/DAY:QD
     Route: 042
     Dates: start: 20200401
  37. ADVATE [Suspect]
     Active Substance: ANTIHEMOPHILIC FACTOR, HUMAN RECOMBINANT
     Dosage: (2000?3000 UNKNOWN UNITS), 2X/DAY:BID
     Route: 042
     Dates: start: 20200403, end: 20200403
  38. VASCORD [AMLODIPINE BESILATE;OLMESARTAN MEDOXOMIL] [Concomitant]
     Active Substance: AMLODIPINE BESYLATE\OLMESARTAN MEDOXOMIL
     Indication: HYPERTENSION
     Dosage: 40/10MG, QD
     Dates: start: 20191004, end: 20210511
  39. DIAMOX SEQUELS [Concomitant]
     Active Substance: ACETAZOLAMIDE
     Dosage: 250 MILLIGRAM, BID
     Dates: start: 20200225, end: 20200225
  40. ENATEC [Concomitant]
     Active Substance: ENALAPRIL MALEATE
     Indication: HYPERTENSION
     Dosage: 25 MILLIGRAM, BID
     Dates: start: 2020
  41. KALIUM [POTASSIUM] [Concomitant]
     Active Substance: POTASSIUM
     Indication: HYPOKALAEMIA
     Dosage: 30 MILLIMOLE, QD
     Dates: start: 20150814, end: 20150817
  42. TOBRADEX [Concomitant]
     Active Substance: DEXAMETHASONE\TOBRAMYCIN
     Dosage: UNK MG, QD
     Dates: start: 20200225, end: 20200304
  43. YELLOX [Concomitant]
     Active Substance: BROMFENAC SODIUM
     Dosage: 0.9MG/ML DROPS, BID
     Dates: start: 20200225, end: 20200308
  44. KCL [Concomitant]
     Active Substance: POTASSIUM CHLORIDE
     Dosage: 40 MILLIMOLE, QD
     Dates: start: 20210512, end: 20210512
  45. CYKLOKAPRON [Concomitant]
     Active Substance: TRANEXAMIC ACID
     Indication: EPISTAXIS
     Dosage: 5 PERCENT
     Dates: start: 20201008
  46. ADVATE [Suspect]
     Active Substance: ANTIHEMOPHILIC FACTOR, HUMAN RECOMBINANT
     Indication: SURGERY
     Dosage: 2000 (UNKNOWN UNIT), 1X/DAY:QD
     Route: 042
     Dates: start: 20200316, end: 20200316
  47. ADVATE [Suspect]
     Active Substance: ANTIHEMOPHILIC FACTOR, HUMAN RECOMBINANT
     Indication: PROPHYLAXIS
     Dosage: 2000 (UNKNOWN UNIT), 3X/DAY:TID
     Route: 042
     Dates: start: 20200317, end: 20200317
  48. ADVATE [Suspect]
     Active Substance: ANTIHEMOPHILIC FACTOR, HUMAN RECOMBINANT
     Dosage: 2000 (UNKNOWN UNIT), 3X/DAY:TID
     Route: 042
     Dates: start: 20200317, end: 20200317
  49. ADVATE [Suspect]
     Active Substance: ANTIHEMOPHILIC FACTOR, HUMAN RECOMBINANT
     Dosage: 2000 (UNKNOWN UNIT), 3X/DAY:TID
     Route: 042
     Dates: start: 20200317, end: 20200317
  50. ADVATE [Suspect]
     Active Substance: ANTIHEMOPHILIC FACTOR, HUMAN RECOMBINANT
     Dosage: 2000 (UNKNOWN UNIT)
     Route: 042
     Dates: start: 20200401
  51. VASCORD [AMLODIPINE BESILATE;OLMESARTAN MEDOXOMIL] [Concomitant]
     Active Substance: AMLODIPINE BESYLATE\OLMESARTAN MEDOXOMIL
     Dosage: 40/10MG, QD
     Dates: start: 20210515
  52. PRED FORTE [Concomitant]
     Active Substance: PREDNISOLONE ACETATE
     Dosage: 1 PERCENT DROPS, TID
     Dates: start: 20200225, end: 20200302
  53. TOBRADEX [Concomitant]
     Active Substance: DEXAMETHASONE\TOBRAMYCIN
     Indication: CATARACT OPERATION
     Dosage: 1MG/3MG DROPS, 5/DAY
     Dates: start: 20200211, end: 20200217
  54. CANDESARTAN. [Concomitant]
     Active Substance: CANDESARTAN
     Dosage: 16 MILLIGRAM, BID
     Dates: start: 20210511, end: 20210514
  55. ADVATE [Suspect]
     Active Substance: ANTIHEMOPHILIC FACTOR, HUMAN RECOMBINANT
     Indication: FACTOR VIII DEFICIENCY
     Dosage: 4000 INTERNATIONAL UNIT
     Route: 042
     Dates: start: 20200316
  56. ADVATE [Suspect]
     Active Substance: ANTIHEMOPHILIC FACTOR, HUMAN RECOMBINANT
     Indication: FACTOR VIII DEFICIENCY
     Dosage: 4000 INTERNATIONAL UNIT
     Route: 042
     Dates: start: 20200316
  57. ADVATE [Suspect]
     Active Substance: ANTIHEMOPHILIC FACTOR, HUMAN RECOMBINANT
     Dosage: 2000 (UNKNOWN UNIT), 1X/DAY:QD
     Route: 042
     Dates: start: 20200318, end: 20200318
  58. ADVATE [Suspect]
     Active Substance: ANTIHEMOPHILIC FACTOR, HUMAN RECOMBINANT
     Dosage: 2000 (UNKNOWN UNIT), 1X/DAY:QD
     Route: 042
     Dates: start: 20200319, end: 20200319
  59. ADVATE [Suspect]
     Active Substance: ANTIHEMOPHILIC FACTOR, HUMAN RECOMBINANT
     Dosage: 2000 (UNKNOWN UNIT), 1X/DAY:QD
     Route: 042
     Dates: start: 20200322, end: 20200322
  60. ADVATE [Suspect]
     Active Substance: ANTIHEMOPHILIC FACTOR, HUMAN RECOMBINANT
     Dosage: 2000 (UNKNOWN UNIT)
     Route: 042
     Dates: start: 20200401
  61. ADVATE [Suspect]
     Active Substance: ANTIHEMOPHILIC FACTOR, HUMAN RECOMBINANT
     Dosage: (2000 UNKNOWN UNITS), 1X/DAY:QD
     Route: 042
     Dates: start: 20200401
  62. ADVATE [Suspect]
     Active Substance: ANTIHEMOPHILIC FACTOR, HUMAN RECOMBINANT
     Dosage: (2000 UNKNOWN UNITS), 1X/DAY:QD
     Route: 042
     Dates: start: 20200404, end: 20200404
  63. DULCOLAX (BISACODYL) [Concomitant]
     Active Substance: BISACODYL
     Indication: CONSTIPATION
     Dosage: UNK
     Dates: start: 2020
  64. DAFALGAN [Concomitant]
     Active Substance: ACETAMINOPHEN
     Indication: PAIN
     Dosage: 1 GRAM
     Dates: start: 2020
  65. MEDROL [METHYLPREDNISOLONE ACETATE] [Concomitant]
     Active Substance: METHYLPREDNISOLONE ACETATE
     Indication: ARTHROPATHY
     Dosage: UNK
     Dates: start: 20171025, end: 20171025
  66. DIAMOX SEQUELS [Concomitant]
     Active Substance: ACETAZOLAMIDE
     Indication: CATARACT OPERATION
     Dosage: 250 MILLIGRAM, BID
     Dates: start: 20200211, end: 20200211
  67. TOBRADEX [Concomitant]
     Active Substance: DEXAMETHASONE\TOBRAMYCIN
     Dosage: 1MG/3MG DROPS, 5/DAY
     Dates: start: 20200225, end: 20200304
  68. TOBRADEX [Concomitant]
     Active Substance: DEXAMETHASONE\TOBRAMYCIN
     Dosage: UNK MG, QD
     Dates: start: 20200211, end: 20200217
  69. ROPIVACAINE. [Concomitant]
     Active Substance: ROPIVACAINE HYDROCHLORIDE
     Indication: ARTHROPATHY
     Dosage: UNK
     Dates: start: 20171025, end: 20171025
  70. ADVATE [Suspect]
     Active Substance: ANTIHEMOPHILIC FACTOR, HUMAN RECOMBINANT
     Indication: PROPHYLAXIS
     Dosage: 2000 (UNKNOWN UNIT), 3X/DAY:TID
     Route: 042
     Dates: start: 20200317, end: 20200317
  71. ADVATE [Suspect]
     Active Substance: ANTIHEMOPHILIC FACTOR, HUMAN RECOMBINANT
     Indication: PROPHYLAXIS
     Dosage: 2000 (UNKNOWN UNIT), 3X/DAY:TID
     Route: 042
     Dates: start: 20200317, end: 20200317
  72. ADVATE [Suspect]
     Active Substance: ANTIHEMOPHILIC FACTOR, HUMAN RECOMBINANT
     Dosage: 2000 (UNKNOWN UNIT), 1X/DAY:QD
     Route: 042
     Dates: start: 20200318, end: 20200318
  73. ADVATE [Suspect]
     Active Substance: ANTIHEMOPHILIC FACTOR, HUMAN RECOMBINANT
     Dosage: 2000 (UNKNOWN UNIT), 1X/DAY:QD
     Route: 042
     Dates: start: 20200321, end: 20200321
  74. ADVATE [Suspect]
     Active Substance: ANTIHEMOPHILIC FACTOR, HUMAN RECOMBINANT
     Dosage: (2000 UNKNOWN UNITS), 1X/DAY:QD
     Route: 042
     Dates: start: 20200402, end: 20200402
  75. ADVATE [Suspect]
     Active Substance: ANTIHEMOPHILIC FACTOR, HUMAN RECOMBINANT
     Dosage: (2000?3000 UNKNOWN UNITS), 2X/DAY:BID
     Route: 042
     Dates: start: 20200403, end: 20200403
  76. ADVATE [Suspect]
     Active Substance: ANTIHEMOPHILIC FACTOR, HUMAN RECOMBINANT
     Dosage: (2000 UNKNOWN UNITS), 1X/DAY:QD
     Route: 042
     Dates: start: 20200404, end: 20200404
  77. ADVATE [Suspect]
     Active Substance: ANTIHEMOPHILIC FACTOR, HUMAN RECOMBINANT
     Dosage: (2000 UNKNOWN UNITS), 1X/DAY:QD
     Route: 042
     Dates: start: 20200405, end: 20200407
  78. KALIUM [POTASSIUM] [Concomitant]
     Active Substance: POTASSIUM
     Dosage: 30 MILLIMOLE, BID
     Dates: start: 20210512, end: 20210517
  79. PRED FORTE [Concomitant]
     Active Substance: PREDNISOLONE ACETATE
     Dosage: 1 PERCENT DROPS, QD
     Dates: start: 20200310, end: 20200316
  80. REMERON [Concomitant]
     Active Substance: MIRTAZAPINE
     Indication: HEADACHE
     Dosage: 7.5 MILLIGRAM, QD
     Dates: start: 20161130
  81. TRAMAL [Concomitant]
     Active Substance: TRAMADOL
     Dosage: 100M/ML DROPS, AS NEEDED UP TO 2/DAY
     Dates: start: 20200928
  82. ADVATE [Suspect]
     Active Substance: ANTIHEMOPHILIC FACTOR, HUMAN RECOMBINANT
     Indication: FACTOR VIII DEFICIENCY
     Dosage: 4000 INTERNATIONAL UNIT
     Route: 042
     Dates: start: 20200316
  83. ADVATE [Suspect]
     Active Substance: ANTIHEMOPHILIC FACTOR, HUMAN RECOMBINANT
     Indication: SURGERY
     Dosage: 2000 (UNKNOWN UNIT), 1X/DAY:QD
     Route: 042
     Dates: start: 20200316, end: 20200316
  84. ADVATE [Suspect]
     Active Substance: ANTIHEMOPHILIC FACTOR, HUMAN RECOMBINANT
     Dosage: 2000 (UNKNOWN UNIT), 1X/DAY:QD
     Route: 042
     Dates: start: 20200319, end: 20200319
  85. ADVATE [Suspect]
     Active Substance: ANTIHEMOPHILIC FACTOR, HUMAN RECOMBINANT
     Dosage: 2000 (UNKNOWN UNIT), 1X/DAY:QD
     Route: 042
     Dates: start: 20200321, end: 20200321
  86. ADVATE [Suspect]
     Active Substance: ANTIHEMOPHILIC FACTOR, HUMAN RECOMBINANT
     Dosage: (2000 UNKNOWN UNITS), 1X/DAY:QD
     Route: 042
     Dates: start: 20200402, end: 20200402
  87. ADVATE [Suspect]
     Active Substance: ANTIHEMOPHILIC FACTOR, HUMAN RECOMBINANT
     Dosage: (2000 UNKNOWN UNITS), 1X/DAY:QD
     Route: 042
     Dates: start: 20200404, end: 20200404
  88. ADVATE [Suspect]
     Active Substance: ANTIHEMOPHILIC FACTOR, HUMAN RECOMBINANT
     Dosage: (2000 UNKNOWN UNITS), 1X/DAY:QD
     Route: 042
     Dates: start: 20200405, end: 20200407
  89. ADVATE [Suspect]
     Active Substance: ANTIHEMOPHILIC FACTOR, HUMAN RECOMBINANT
     Dosage: (2000 UNKNOWN UNITS), 1X/DAY:QD
     Route: 042
     Dates: start: 20200405, end: 20200407
  90. ADVATE [Suspect]
     Active Substance: ANTIHEMOPHILIC FACTOR, HUMAN RECOMBINANT
     Dosage: (2000 UNKNOWN UNITS), 1X/DAY:QD
     Route: 042
     Dates: start: 20200405, end: 20200407
  91. DAFALGAN [Concomitant]
     Active Substance: ACETAMINOPHEN
     Indication: HEADACHE
     Dosage: 500/30MG, QD
     Dates: start: 20160321

REACTIONS (2)
  - Prosthesis implantation [Recovered/Resolved]
  - Gastrointestinal haemorrhage [Recovered/Resolved]

NARRATIVE: CASE EVENT DATE: 20200401
